FAERS Safety Report 10388113 (Version 2)
Quarter: 2014Q3

REPORT INFORMATION
  Report Type: Spontaneous
  Country: JP (occurrence: JP)
  Receive Date: 20140815
  Receipt Date: 20140916
  Transmission Date: 20150326
  Serious: Yes (Death)
  Sender: FDA-Public Use
  Company Number: PHHY2014JP096434

PATIENT
  Age: 84 Year
  Sex: Male

DRUGS (1)
  1. ULTIBRO BREEZHALER [Suspect]
     Active Substance: GLYCOPYRRONIUM\INDACATEROL
     Indication: CHRONIC OBSTRUCTIVE PULMONARY DISEASE
     Dosage: 1 DF, DAILY
     Route: 055
     Dates: start: 20140214, end: 20140227

REACTIONS (1)
  - Pneumonia [Fatal]

NARRATIVE: CASE EVENT DATE: 20140314
